FAERS Safety Report 24972415 (Version 2)
Quarter: 2025Q3

REPORT INFORMATION
  Report Type: Spontaneous
  Country: US (occurrence: US)
  Receive Date: 20250215
  Receipt Date: 20250810
  Transmission Date: 20251021
  Serious: No
  Sender: ALEXION PHARMACEUTICALS
  Company Number: US-AstraZeneca-2002UW13213

PATIENT
  Age: 87 Year
  Sex: Female

DRUGS (3)
  1. ESOMEPRAZOLE [Suspect]
     Active Substance: ESOMEPRAZOLE
     Dosage: 40 MILLIGRAM, QD
  2. ZOCOR [Concomitant]
     Active Substance: SIMVASTATIN
  3. PRINIVIL [Concomitant]
     Active Substance: LISINOPRIL

REACTIONS (1)
  - Tinnitus [Unknown]
